FAERS Safety Report 5718033-1 (Version None)
Quarter: 2008Q2

REPORT INFORMATION
  Report Type: 
  Country: None (occurrence: None)
  Receive Date: 20080425
  Receipt Date: 20080417
  Transmission Date: 20081010
  Serious: Yes (Other)
  Sender: FDA-Public Use
  Company Number: US-ASTRAZENECA-2008UW08270

PATIENT
  Age: 71 Year
  Sex: Female
  Weight: 66.7 kg

DRUGS (5)
  1. FASLODEX [Suspect]
     Indication: BREAST CANCER
     Route: 030
     Dates: start: 20071101
  2. PREVACID [Concomitant]
  3. CLARITIN [Concomitant]
  4. VESICARE [Concomitant]
  5. ARIMIDEX [Concomitant]
     Route: 048

REACTIONS (3)
  - BLOOD POTASSIUM DECREASED [None]
  - ILL-DEFINED DISORDER [None]
  - PAIN [None]
